FAERS Safety Report 13240818 (Version 1)
Quarter: 2017Q1

REPORT INFORMATION
  Report Type: Spontaneous
  Country: US (occurrence: US)
  Receive Date: 20170216
  Receipt Date: 20170216
  Transmission Date: 20170428
  Serious: No
  Sender: FDA-Public Use
  Company Number: US-SHIRE-US201702971

PATIENT
  Age: 9 Year
  Sex: Male

DRUGS (1)
  1. VYVANSE [Suspect]
     Active Substance: LISDEXAMFETAMINE DIMESYLATE
     Indication: ATTENTION DEFICIT/HYPERACTIVITY DISORDER
     Dosage: 10 MG, 1X/DAY:QD
     Route: 048

REACTIONS (5)
  - Disturbance in attention [Unknown]
  - Wrong technique in product usage process [Not Recovered/Not Resolved]
  - Reaction to food colouring [Not Recovered/Not Resolved]
  - Product quality issue [Not Recovered/Not Resolved]
  - Psychomotor hyperactivity [Unknown]
